FAERS Safety Report 11852467 (Version 3)
Quarter: 2016Q1

REPORT INFORMATION
  Report Type: Spontaneous
  Country: US (occurrence: US)
  Receive Date: 20151218
  Receipt Date: 20160127
  Transmission Date: 20160526
  Serious: No
  Sender: FDA-Public Use
  Company Number: US-PFIZER INC-2015444841

PATIENT
  Age: 71 Year
  Sex: Female
  Weight: 70.31 kg

DRUGS (4)
  1. LYRICA [Suspect]
     Active Substance: PREGABALIN
     Indication: NERVE COMPRESSION
     Dosage: 75 MG, 3X/DAY
     Route: 048
  2. AMBIEN [Suspect]
     Active Substance: ZOLPIDEM TARTRATE
     Indication: INSOMNIA
     Dosage: UNK
  3. LYRICA [Suspect]
     Active Substance: PREGABALIN
     Dosage: 100 MG, 3X/DAY
     Route: 048
     Dates: start: 20151207
  4. LYRICA [Suspect]
     Active Substance: PREGABALIN
     Indication: NEURALGIA
     Dosage: 75 MG, 4X/DAY
     Route: 048

REACTIONS (3)
  - Drug ineffective [Unknown]
  - Sleep disorder [Unknown]
  - Insomnia [Unknown]
